FAERS Safety Report 8313227-3 (Version None)
Quarter: 2012Q2

REPORT INFORMATION
  Report Type: 
  Country: None (occurrence: None)
  Receive Date: 20120426
  Receipt Date: 20120416
  Transmission Date: 20120825
  Serious: Yes (Hospitalization)
  Sender: FDA-Public Use
  Company Number: FR-MILLENNIUM PHARMACEUTICALS, INC.-2012-02476

PATIENT

DRUGS (14)
  1. TRAMADOL HCL [Concomitant]
     Indication: PAIN PROPHYLAXIS
     Dosage: 100 MG, PRN
     Route: 048
  2. LAMALINE                           /00764901/ [Concomitant]
     Dosage: 340 MG, QD
     Route: 048
  3. VELCADE [Suspect]
     Indication: MULTIPLE MYELOMA
     Dosage: 1 MG/M2, UNK
     Route: 042
     Dates: start: 20120124, end: 20120405
  4. DAFALGAN                           /00020001/ [Concomitant]
     Indication: BACK PAIN
     Dosage: 1 G, PRN
     Route: 048
  5. DEXAMETHASONE [Suspect]
     Indication: MULTIPLE MYELOMA
     Dosage: 8 MG, UNK
     Route: 048
     Dates: start: 20120124, end: 20120405
  6. KETOPROFEN [Concomitant]
     Indication: BACK PAIN
     Dosage: 100 MG, PRN
     Route: 048
  7. AERIUS                             /01398501/ [Concomitant]
     Dosage: 5 MG, BID
     Route: 048
  8. POLYETHYLENE GLYCOL [Concomitant]
     Dosage: 10 MG, BID
     Route: 048
  9. CLARITHROMYCIN [Concomitant]
     Dosage: 500 MG, BID
     Route: 048
  10. EXOMUC [Concomitant]
     Dosage: 200 MG, QD
     Route: 048
  11. AUGMENTIN '125' [Concomitant]
     Dosage: 500 MG, BID
     Route: 048
  12. JNJ-26481585 [Suspect]
     Indication: MULTIPLE MYELOMA
     Dosage: 6 MG, UNK
     Route: 048
     Dates: start: 20120123, end: 20120330
  13. ZELITREX                           /01269701/ [Concomitant]
     Indication: INFECTION PROPHYLAXIS
     Dosage: 500 MG, BID
     Route: 048
  14. ZOMETA [Concomitant]
     Indication: PROPHYLAXIS
     Dosage: 4 MG, UNK
     Route: 042

REACTIONS (1)
  - PERFORMANCE STATUS DECREASED [None]
